FAERS Safety Report 25929670 (Version 1)
Quarter: 2025Q4

REPORT INFORMATION
  Report Type: Spontaneous
  Country: TH (occurrence: TH)
  Receive Date: 20251016
  Receipt Date: 20251016
  Transmission Date: 20260118
  Serious: Yes (Other)
  Sender: INCYTE
  Company Number: TH-002147023-NVSC2025TH156662

PATIENT
  Age: 60 Year

DRUGS (1)
  1. RUXOLITINIB [Suspect]
     Active Substance: RUXOLITINIB
     Indication: Myelofibrosis
     Dosage: 5 MG, BID
     Route: 065

REACTIONS (2)
  - Acute myeloid leukaemia [Unknown]
  - Malignant neoplasm progression [Unknown]
